FAERS Safety Report 6109549-7 (Version None)
Quarter: 2009Q1

REPORT INFORMATION
  Report Type: 
  Country: None (occurrence: None)
  Receive Date: 20090310
  Receipt Date: 20090302
  Transmission Date: 20090719
  Serious: Yes (Other)
  Sender: FDA-Public Use
  Company Number: GB-ASTRAZENECA-2009GB00599

PATIENT
  Age: 16918 Day
  Sex: Female
  Weight: 60 kg

DRUGS (2)
  1. ZOMIG 2.5MG TABLET [Suspect]
     Route: 048
     Dates: start: 20090101
  2. AMITRIPTYLINE HCL [Concomitant]
     Indication: MIGRAINE
     Route: 048

REACTIONS (2)
  - CHEST DISCOMFORT [None]
  - DYSPNOEA [None]
